FAERS Safety Report 5270668-9 (Version None)
Quarter: 2007Q1

REPORT INFORMATION
  Report Type: 
  Country: None (occurrence: None)
  Receive Date: 20070321
  Receipt Date: 20070308
  Transmission Date: 20070707
  Serious: Yes (Other)
  Sender: FDA-Public Use
  Company Number: PHBS2007JP04450

PATIENT
  Age: 70 Year
  Sex: Male

DRUGS (2)
  1. LUDIOMIL [Suspect]
     Indication: DEPRESSION
     Dosage: 10MG DAILY
     Route: 048
     Dates: start: 20070101
  2. LENDORMIN [Concomitant]

REACTIONS (1)
  - RHABDOMYOLYSIS [None]
